FAERS Safety Report 6929697-9 (Version None)
Quarter: 2010Q3

REPORT INFORMATION
  Report Type: 
  Country: None (occurrence: None)
  Receive Date: 20100818
  Receipt Date: 20100811
  Transmission Date: 20110219
  Serious: Yes (Disabling, Other)
  Sender: FDA-Public Use
  Company Number: US-BAYER-201019072BCC

PATIENT
  Sex: Female

DRUGS (1)
  1. VANQUISH [Suspect]
     Indication: BACK PAIN
     Dosage: BOTTLE COUNT 100S

REACTIONS (3)
  - DEPENDENCE [None]
  - DRY MOUTH [None]
  - TOOTH LOSS [None]
